FAERS Safety Report 8970298 (Version 1)
Quarter: 2012Q4

REPORT INFORMATION
  Report Type: 
  Country: PR (occurrence: PR)
  Receive Date: 20121218
  Receipt Date: 20121218
  Transmission Date: 20130627
  Serious: No
  Sender: FDA-Public Use
  Company Number: PR-BRISTOL-MYERS SQUIBB COMPANY-17038464

PATIENT
  Age: 6 Year
  Sex: Male
  Weight: 27.21 kg

DRUGS (2)
  1. ABILIFY [Suspect]
     Indication: IMPULSIVE BEHAVIOUR
  2. ABILIFY [Suspect]
     Indication: ATTENTION DEFICIT/HYPERACTIVITY DISORDER

REACTIONS (2)
  - Paraesthesia [Unknown]
  - Abnormal behaviour [Unknown]
